FAERS Safety Report 4537442-X (Version None)
Quarter: 2004Q4

REPORT INFORMATION
  Report Type: 
  Country: None (occurrence: None)
  Receive Date: 20041216
  Receipt Date: 20031212
  Transmission Date: 20050328
  Serious: Yes (Other)
  Sender: FDA-Public Use
  Company Number: HQWYE623715DEC03

PATIENT
  Age: 63 Year
  Sex: Female
  Weight: 56.75 kg

DRUGS (4)
  1. EFFEXOR XR [Suspect]
     Indication: DEPRESSION
     Dosage: 75 -150MG 1X PER 1 DAY, ORAL
     Route: 048
     Dates: start: 20030701, end: 20031101
  2. EFFEXOR XR [Suspect]
     Indication: DEPRESSION
     Dosage: 75 -150MG 1X PER 1 DAY, ORAL
     Route: 048
     Dates: start: 20031101, end: 20031229
  3. THYROID TAB [Suspect]
     Indication: HYPOTHYROIDISM
     Dosage: 60 MG 1X PER 1 DAY
  4. HYDROCODONE BITARTRATE + ACETAMINOPHEN [Suspect]
     Indication: SPINAL OSTEOARTHRITIS
     Dosage: TAKEN WHENEVER NECESSARY

REACTIONS (4)
  - DRUG INEFFECTIVE [None]
  - DRUG INTERACTION [None]
  - HEART RATE INCREASED [None]
  - HYPERTENSION [None]
